FAERS Safety Report 24999097 (Version 2)
Quarter: 2025Q4

REPORT INFORMATION
  Report Type: Spontaneous
  Country: US (occurrence: US)
  Receive Date: 20250222
  Receipt Date: 20251021
  Transmission Date: 20260118
  Serious: No
  Sender: SANOFI AVENTIS
  Company Number: US-SA-2025SA048593

PATIENT
  Age: 48 Year
  Sex: Female

DRUGS (10)
  1. DUPIXENT [Suspect]
     Active Substance: DUPILUMAB
     Indication: Asthma
     Dosage: 300 MG, QOW
     Route: 058
     Dates: start: 20250212
  2. CRESTOR [Concomitant]
     Active Substance: ROSUVASTATIN CALCIUM
  3. WELLBUTRIN XL [Concomitant]
     Active Substance: BUPROPION HYDROCHLORIDE
  4. IPRATROPIUM [Concomitant]
     Active Substance: IPRATROPIUM
  5. CLARITIN [Concomitant]
     Active Substance: LORATADINE
  6. MAGNESIUM [Concomitant]
     Active Substance: MAGNESIUM
  7. PREDNISONE [Concomitant]
     Active Substance: PREDNISONE
  8. ASCORBIC ACID [Concomitant]
     Active Substance: ASCORBIC ACID
  9. AZITHROMYCIN [Concomitant]
     Active Substance: AZITHROMYCIN
  10. ALBUTEROL SULFATE [Concomitant]
     Active Substance: ALBUTEROL SULFATE
     Dosage: UNK

REACTIONS (3)
  - Oropharyngeal pain [Unknown]
  - Asthma [Recovering/Resolving]
  - Injection site reaction [Unknown]

NARRATIVE: CASE EVENT DATE: 20250101
